FAERS Safety Report 4928619-X (Version None)
Quarter: 2006Q1

REPORT INFORMATION
  Report Type: 
  Country: None (occurrence: None)
  Receive Date: 20060227
  Receipt Date: 20060227
  Transmission Date: 20060701
  Serious: Yes (Life-Threatening, Hospitalization, Other)
  Sender: FDA-Public Use
  Company Number: None

PATIENT
  Sex: Male
  Weight: 70.3075 kg

DRUGS (1)
  1. PAXIL [Suspect]
     Indication: PANIC ATTACK
     Dosage: 30 MG  ONCE DAILY  PO  (THERAPY DATES: A FEW YEARS AGO OR SO)
     Route: 048

REACTIONS (10)
  - AGGRESSION [None]
  - ANGER [None]
  - CRYING [None]
  - FEELING ABNORMAL [None]
  - IMPAIRED DRIVING ABILITY [None]
  - MALAISE [None]
  - MEMORY IMPAIRMENT [None]
  - ROAD TRAFFIC ACCIDENT [None]
  - SUICIDAL IDEATION [None]
  - THINKING ABNORMAL [None]
